FAERS Safety Report 9528943 (Version 1)
Quarter: 2013Q3

REPORT INFORMATION
  Report Type: Spontaneous
  Country: BE (occurrence: BE)
  Receive Date: 20130917
  Receipt Date: 20130917
  Transmission Date: 20140515
  Serious: Yes (Other)
  Sender: FDA-Public Use
  Company Number: BE-ELI_LILLY_AND_COMPANY-BE201309002139

PATIENT
  Age: 26 Year
  Sex: Male

DRUGS (1)
  1. ZYPADHERA [Suspect]
     Dosage: 405 MG, UNKNOWN
     Route: 065
     Dates: start: 2012

REACTIONS (2)
  - Coordination abnormal [Recovered/Resolved]
  - Dizziness [Recovered/Resolved]
